FAERS Safety Report 13185775 (Version 1)
Quarter: 2017Q1

REPORT INFORMATION
  Report Type: Spontaneous
  Country: US (occurrence: US)
  Receive Date: 20170203
  Receipt Date: 20170203
  Transmission Date: 20170428
  Serious: No
  Sender: FDA-Public Use
  Company Number: US-GLAXOSMITHKLINE-US2017011000

PATIENT
  Age: 69 Year
  Sex: Male

DRUGS (2)
  1. EXCEDRIN [Suspect]
     Active Substance: ACETAMINOPHEN\ASPIRIN\CAFFEINE
     Indication: NASOPHARYNGITIS
     Dosage: UNK
     Dates: start: 20170124
  2. DICLOFENAC SODIUM GEL [Suspect]
     Active Substance: DICLOFENAC SODIUM
     Indication: ARTHRITIS
     Dosage: 2 G, TID
     Dates: start: 20170122

REACTIONS (5)
  - Nasopharyngitis [Recovering/Resolving]
  - Intentional product use issue [Unknown]
  - Drug administered at inappropriate site [Unknown]
  - Off label use [Unknown]
  - Inappropriate schedule of drug administration [Unknown]
